FAERS Safety Report 8142168-X (Version None)
Quarter: 2012Q1

REPORT INFORMATION
  Report Type: 
  Country: None (occurrence: None)
  Receive Date: 20120216
  Receipt Date: 20120206
  Transmission Date: 20120608
  Serious: Yes (Hospitalization)
  Sender: FDA-Public Use
  Company Number: FI-JNJFOC-20120112471

PATIENT
  Sex: Male
  Weight: 78 kg

DRUGS (6)
  1. GOLIMUMAB [Suspect]
     Indication: RHEUMATOID ARTHRITIS
     Route: 058
     Dates: start: 20111228
  2. ARCOXIA [Concomitant]
     Route: 048
     Dates: start: 20101013
  3. GOLIMUMAB [Suspect]
     Route: 058
     Dates: start: 20070228
  4. PREDNISOLONE [Concomitant]
     Route: 048
     Dates: start: 20010504
  5. CALCICHEW-D3 FORTE [Concomitant]
     Route: 048
     Dates: start: 20070105
  6. PANADOL FORTE [Concomitant]
     Route: 048

REACTIONS (1)
  - APPENDICITIS [None]
